FAERS Safety Report 4463798-2 (Version None)
Quarter: 2004Q3

REPORT INFORMATION
  Report Type: 
  Country: None (occurrence: None)
  Receive Date: 20040929
  Receipt Date: 20040927
  Transmission Date: 20050211
  Serious: Yes (Hospitalization)
  Sender: FDA-Public Use
  Company Number: USA-2004-0016944

PATIENT
  Age: 1 Year
  Sex: Male

DRUGS (3)
  1. CEFDITOREN PIVOXIL (CEFDITOREN PIVOXIL ) [Suspect]
     Indication: UPPER RESPIRATORY TRACT INFECTION
     Dosage: 80 MG, UNK,ORAL
     Route: 048
  2. OXATOMIDE [Concomitant]
  3. MUCODYNE (CARBOCISTEINE) [Concomitant]

REACTIONS (1)
  - ERYTHEMA MULTIFORME [None]
